FAERS Safety Report 4981859-6 (Version None)
Quarter: 2006Q2

REPORT INFORMATION
  Report Type: 
  Country: None (occurrence: None)
  Receive Date: 20060424
  Receipt Date: 20060424
  Transmission Date: 20061013
  Serious: Yes (Death, Hospitalization)
  Sender: FDA-Public Use
  Company Number: None

PATIENT
  Sex: Male
  Weight: 63.7 kg

DRUGS (2)
  1. CISPLATIN [Suspect]
     Indication: SMALL CELL LUNG CANCER STAGE UNSPECIFIED
     Dosage: 141 MG
     Dates: start: 20060403
  2. ETOPOSIDE [Suspect]
     Dosage: 528 MG
     Dates: start: 20060405

REACTIONS (7)
  - INFECTION [None]
  - NAUSEA [None]
  - NEUTROPHIL COUNT DECREASED [None]
  - PLATELET COUNT DECREASED [None]
  - TACHYCARDIA [None]
  - THERAPY NON-RESPONDER [None]
  - VOMITING [None]
